FAERS Safety Report 25643373 (Version 2)
Quarter: 2025Q3

REPORT INFORMATION
  Report Type: Spontaneous
  Country: US (occurrence: US)
  Receive Date: 20250805
  Receipt Date: 20250806
  Transmission Date: 20251021
  Serious: Yes (Other)
  Sender: BAXTER
  Company Number: US-BAXTER-2025BAX019029

PATIENT
  Age: 5 Year

DRUGS (1)
  1. MANNITOL [Suspect]
     Active Substance: MANNITOL
     Route: 042
     Dates: start: 20250716

REACTIONS (3)
  - Extravasation [Unknown]
  - Wrong product administered [Unknown]
  - Product packaging confusion [Unknown]

NARRATIVE: CASE EVENT DATE: 20250716
